FAERS Safety Report 7304021-0 (Version None)
Quarter: 2011Q1

REPORT INFORMATION
  Report Type: 
  Country: None (occurrence: None)
  Receive Date: 20110221
  Receipt Date: 20110217
  Transmission Date: 20110831
  Serious: Yes (Life-Threatening, Hospitalization)
  Sender: FDA-Public Use
  Company Number: PT-ASTRAZENECA-2011SE09349

PATIENT
  Age: 55 Year
  Sex: Male
  Weight: 78 kg

DRUGS (4)
  1. GOPTEN [Concomitant]
     Indication: HYPERTENSION
     Route: 048
     Dates: end: 20100628
  2. CRESTOR [Suspect]
     Indication: DYSLIPIDAEMIA
     Route: 048
     Dates: end: 20100628
  3. EZETROL [Interacting]
     Indication: DYSLIPIDAEMIA
     Route: 048
     Dates: end: 20100628
  4. NASOMET [Concomitant]
     Indication: RHINITIS
     Route: 045

REACTIONS (2)
  - EPISTAXIS [None]
  - DRUG INTERACTION [None]
